FAERS Safety Report 7736523-7 (Version None)
Quarter: 2011Q3

REPORT INFORMATION
  Report Type: 
  Country: None (occurrence: None)
  Receive Date: 20110902
  Receipt Date: 20110820
  Transmission Date: 20111222
  Serious: Yes (Other)
  Sender: FDA-Public Use
  Company Number: 2011P1008427

PATIENT
  Sex: Female

DRUGS (4)
  1. FENTANYL [Suspect]
     Indication: PAIN MANAGEMENT
     Dosage: 1  PATCH;Q72H;TDER
     Route: 062
  2. FENTANYL [Suspect]
     Indication: PAIN MANAGEMENT
     Dosage: 1 PATCH; Q72H; TDER
     Route: 062
  3. CHEMOTHERAPY [Concomitant]
  4. FENTANYL-75 [Suspect]
     Indication: PAIN MANAGEMENT
     Dosage: 1 PATCH;Q72H;TDER
     Route: 062

REACTIONS (6)
  - NEOPLASM PROGRESSION [None]
  - FRUSTRATION [None]
  - DRUG EFFECT DECREASED [None]
  - TREATMENT NONCOMPLIANCE [None]
  - PAIN [None]
  - CONDITION AGGRAVATED [None]
